FAERS Safety Report 4865214-5 (Version None)
Quarter: 2005Q4

REPORT INFORMATION
  Report Type: 
  Country: None (occurrence: None)
  Receive Date: 20051223
  Receipt Date: 20051217
  Transmission Date: 20060501
  Serious: Yes (Other)
  Sender: FDA-Public Use
  Company Number: GB-GLAXOSMITHKLINE-B0404081A

PATIENT
  Age: 4 Year
  Sex: Male
  Weight: 19.6 kg

DRUGS (1)
  1. ZOFRAN [Suspect]
     Dosage: 2MG SINGLE DOSE
     Route: 042
     Dates: start: 20051129, end: 20051129

REACTIONS (6)
  - CONVULSION [None]
  - EPILEPSY [None]
  - FLUSHING [None]
  - HYPOTONIA [None]
  - MUSCULOSKELETAL STIFFNESS [None]
  - URINARY INCONTINENCE [None]
